FAERS Safety Report 5953140-X (Version None)
Quarter: 2008Q4

REPORT INFORMATION
  Report Type: 
  Country: None (occurrence: None)
  Receive Date: 20081114
  Receipt Date: 20081107
  Transmission Date: 20090506
  Serious: No
  Sender: FDA-Public Use
  Company Number: US-BAYER-200831522NA

PATIENT
  Age: 73 Year
  Sex: Female
  Weight: 59 kg

DRUGS (5)
  1. NEXAVAR [Suspect]
     Indication: BREAST CANCER METASTATIC
     Dosage: TOTAL DAILY DOSE: 800 MG  UNIT DOSE: 200 MG
     Route: 048
     Dates: start: 20080708, end: 20080718
  2. NEXAVAR [Suspect]
     Dosage: TOTAL DAILY DOSE: 400 MG  UNIT DOSE: 200 MG
     Route: 048
     Dates: start: 20080812
  3. ZOMETA [Suspect]
     Indication: BREAST CANCER METASTATIC
     Dates: start: 20080708
  4. NEURONTIN [Concomitant]
     Indication: PAIN
     Dosage: TOTAL DAILY DOSE: 1800 MG
     Dates: start: 20080729
  5. LORTAB [Concomitant]
     Indication: PAIN
     Dates: start: 20080729

REACTIONS (3)
  - HERPES ZOSTER [None]
  - MUCOSAL INFLAMMATION [None]
  - RASH [None]
